FAERS Safety Report 5914541-9 (Version None)
Quarter: 2008Q4

REPORT INFORMATION
  Report Type: 
  Country: None (occurrence: None)
  Receive Date: 20081008
  Receipt Date: 20080923
  Transmission Date: 20090506
  Serious: Yes (Hospitalization)
  Sender: FDA-Public Use
  Company Number: 2008BI019256

PATIENT
  Age: 29 Year
  Sex: Female
  Weight: 64 kg

DRUGS (5)
  1. AVONEX [Suspect]
     Indication: RELAPSING-REMITTING MULTIPLE SCLEROSIS
     Dosage: QW; IM
     Route: 030
     Dates: start: 20030101, end: 20060601
  2. AVONEX [Suspect]
     Indication: RELAPSING-REMITTING MULTIPLE SCLEROSIS
     Dosage: QW; IM
     Route: 030
     Dates: start: 20070401
  3. PROPULSID [Concomitant]
  4. NOVORAPID [Concomitant]
  5. LENTUS [Concomitant]

REACTIONS (5)
  - BURNING SENSATION [None]
  - DIABETES MELLITUS INADEQUATE CONTROL [None]
  - MULTIPLE SCLEROSIS RELAPSE [None]
  - PYELONEPHRITIS [None]
  - STRESS [None]
